FAERS Safety Report 8592960-2 (Version None)
Quarter: 2012Q3

REPORT INFORMATION
  Report Type: 
  Country: None (occurrence: None)
  Receive Date: 20120814
  Receipt Date: 20120806
  Transmission Date: 20120928
  Serious: Yes (Death)
  Sender: FDA-Public Use
  Company Number: DE-CELGENEUS-062-50794-12080551

PATIENT
  Age: 82 Year
  Sex: Male
  Weight: 70 kg

DRUGS (2)
  1. VIDAZA [Suspect]
     Route: 065
     Dates: end: 20120402
  2. PLATELETS [Concomitant]
     Indication: EPISTAXIS
     Route: 041
     Dates: start: 20120601, end: 20120601

REACTIONS (1)
  - ACUTE MYELOID LEUKAEMIA [None]
